FAERS Safety Report 6165344-4 (Version None)
Quarter: 2009Q2

REPORT INFORMATION
  Report Type: 
  Country: None (occurrence: None)
  Receive Date: 20090423
  Receipt Date: 20090414
  Transmission Date: 20091009
  Serious: Yes (Death, Hospitalization, Other)
  Sender: FDA-Public Use
  Company Number: US-BAXTER-2009BH005102

PATIENT
  Age: 61 Year
  Sex: Male

DRUGS (5)
  1. PROSOL 20% SULFITE FREE [Suspect]
     Indication: MALABSORPTION
     Route: 042
     Dates: start: 20090217, end: 20090219
  2. PROSOL 20% SULFITE FREE [Suspect]
     Route: 042
     Dates: start: 20090305
  3. AMINOSYN [Concomitant]
     Indication: DRUG USE FOR UNKNOWN INDICATION
     Route: 065
  4. DILAUDID [Concomitant]
     Indication: DRUG USE FOR UNKNOWN INDICATION
     Route: 065
  5. MERREM [Concomitant]
     Indication: DRUG USE FOR UNKNOWN INDICATION
     Route: 065

REACTIONS (5)
  - CHILLS [None]
  - MALAISE [None]
  - METASTATIC NEOPLASM [None]
  - MULTI-ORGAN FAILURE [None]
  - PYREXIA [None]
